FAERS Safety Report 4480182-6 (Version None)
Quarter: 2004Q4

REPORT INFORMATION
  Report Type: 
  Country: None (occurrence: None)
  Receive Date: 20041018
  Receipt Date: 20041008
  Transmission Date: 20050328
  Serious: Yes (Death, Hospitalization)
  Sender: FDA-Public Use
  Company Number: STA-AE-04-MTX-449

PATIENT
  Age: 84 Year
  Sex: Female

DRUGS (4)
  1. RHEUMATREX [Suspect]
     Indication: RHEUMATOID ARTHRITIS
     Dosage: 4 MG 1X PER 1WK, ORAL
     Route: 048
     Dates: start: 20040831, end: 20040907
  2. METHYCOBAL (MECOBALAMIN) [Concomitant]
  3. INDOMETHACIN [Concomitant]
  4. UNSPECIFIED NON-STEROID ANTI-INFLAMMATORY AGENT (UNSPECIFIED NON-STERO [Concomitant]

REACTIONS (7)
  - BLOOD CREATININE INCREASED [None]
  - C-REACTIVE PROTEIN INCREASED [None]
  - DYSPNOEA [None]
  - FATIGUE [None]
  - HYPERSENSITIVITY [None]
  - PLATELET COUNT DECREASED [None]
  - WHITE BLOOD CELL COUNT DECREASED [None]
